FAERS Safety Report 8817483 (Version 2)
Quarter: 2013Q2

REPORT INFORMATION
  Report Type: Spontaneous
  Country: JP (occurrence: JP)
  Receive Date: 20121001
  Receipt Date: 20130417
  Transmission Date: 20140414
  Serious: Yes (Hospitalization)
  Sender: FDA-Public Use
  Company Number: JP-SANOFI-AVENTIS-2012SA062852

PATIENT
  Age: 38 Year
  Sex: Female

DRUGS (10)
  1. LANTUS SOLOSTAR [Suspect]
     Indication: SUICIDE ATTEMPT
     Dosage: DOSE:300 UNIT(S)
     Route: 058
     Dates: start: 20120824, end: 20120824
  2. LANTUS SOLOSTAR [Suspect]
     Indication: PRODUCT USED FOR UNKNOWN INDICATION
     Dosage: DOSE:300 UNIT(S)
     Route: 058
     Dates: start: 20120824, end: 20120824
  3. LANTUS SOLOSTAR [Suspect]
     Indication: SUICIDE ATTEMPT
     Route: 058
  4. LANTUS SOLOSTAR [Suspect]
     Indication: PRODUCT USED FOR UNKNOWN INDICATION
     Route: 058
  5. SOLOSTAR [Suspect]
     Indication: DEVICE THERAPY
     Dates: start: 20120824, end: 20120824
  6. SOLOSTAR [Suspect]
     Indication: DEVICE THERAPY
  7. NOVOLIN R [Suspect]
     Indication: SUICIDE ATTEMPT
     Dosage: DOSE:200 UNIT(S)
     Route: 058
     Dates: start: 20120824, end: 20120824
  8. NOVOLIN R [Suspect]
     Indication: PRODUCT USED FOR UNKNOWN INDICATION
     Dosage: DOSE:200 UNIT(S)
     Route: 058
     Dates: start: 20120824, end: 20120824
  9. NOVOLIN R [Suspect]
     Indication: SUICIDE ATTEMPT
     Route: 065
  10. NOVOLIN R [Suspect]
     Indication: PRODUCT USED FOR UNKNOWN INDICATION
     Route: 065

REACTIONS (4)
  - Suicide attempt [Unknown]
  - Intentional overdose [Unknown]
  - Hypoglycaemia [Recovered/Resolved]
  - Altered state of consciousness [Recovered/Resolved]
